FAERS Safety Report 8139528-X (Version None)
Quarter: 2012Q1

REPORT INFORMATION
  Report Type: 
  Country: None (occurrence: None)
  Receive Date: 20120215
  Receipt Date: 20120203
  Transmission Date: 20120608
  Serious: Yes (Other)
  Sender: FDA-Public Use
  Company Number: CA-CELGENEUS-028-21880-12020515

PATIENT
  Sex: Male

DRUGS (11)
  1. XALATAN [Concomitant]
     Route: 047
  2. RABEPRAZOLE SODIUM [Concomitant]
     Dosage: 1-2 TABS
     Route: 065
  3. REVLIMID [Suspect]
     Indication: MULTIPLE MYELOMA
     Dosage: 15 MILLIGRAM
     Route: 048
     Dates: start: 20110901
  4. DEXAMETHASONE [Concomitant]
     Dosage: 20
     Route: 065
  5. METOCLOPRAMIDE [Concomitant]
     Route: 065
  6. ZOFRAN [Concomitant]
     Route: 065
  7. RAMIPRIL [Concomitant]
     Route: 065
  8. ASPIRIN [Concomitant]
     Dosage: 81 MILLIGRAM
     Route: 065
  9. LORAZEPAM [Concomitant]
     Route: 065
  10. LIPITOR [Concomitant]
     Dosage: 40 MILLIGRAM
     Route: 065
  11. ZOPICLONE [Concomitant]
     Dosage: 7.5 MILLIGRAM
     Route: 065

REACTIONS (7)
  - MEMORY IMPAIRMENT [None]
  - FALL [None]
  - CONSTIPATION [None]
  - HALLUCINATION [None]
  - FATIGUE [None]
  - MALAISE [None]
  - SMALL CELL LUNG CANCER STAGE UNSPECIFIED [None]
